FAERS Safety Report 18374307 (Version 2)
Quarter: 2020Q4

REPORT INFORMATION
  Report Type: Spontaneous
  Country: US (occurrence: US)
  Receive Date: 20201012
  Receipt Date: 20201030
  Transmission Date: 20210114
  Serious: No
  Sender: FDA-Public Use
  Company Number: US-BAYER-2020-206219

PATIENT
  Sex: Male

DRUGS (2)
  1. NUBEQA [Suspect]
     Active Substance: DAROLUTAMIDE
     Indication: PROSTATE CANCER
     Dosage: UNK
     Dates: start: 20200101
  2. FIRMAGON [Suspect]
     Active Substance: DEGARELIX ACETATE
     Dosage: UNK UNK, Q1MON

REACTIONS (8)
  - Asthenia [None]
  - Tremor [None]
  - Dyspnoea [None]
  - Asthma [None]
  - Fatigue [None]
  - Gait disturbance [None]
  - Amnesia [Not Recovered/Not Resolved]
  - Exercise lack of [None]

NARRATIVE: CASE EVENT DATE: 202009
